FAERS Safety Report 7295946-3 (Version None)
Quarter: 2011Q1

REPORT INFORMATION
  Report Type: 
  Country: None (occurrence: None)
  Receive Date: 20110216
  Receipt Date: 20110208
  Transmission Date: 20110831
  Serious: Yes (Hospitalization)
  Sender: FDA-Public Use
  Company Number: SE-ASTRAZENECA-2011SE07649

PATIENT
  Age: 86 Year
  Sex: Male

DRUGS (12)
  1. SERTRALINE [Concomitant]
  2. ZOPIKLON [Concomitant]
  3. EMCONCOR [Suspect]
     Indication: ESSENTIAL HYPERTENSION
     Route: 048
     Dates: end: 20100901
  4. BEVIPLEX FORTE [Concomitant]
  5. ETALPHA [Concomitant]
     Route: 048
  6. XANOR [Concomitant]
     Route: 048
  7. FELODIPINE [Suspect]
     Indication: ESSENTIAL HYPERTENSION
     Route: 048
     Dates: end: 20100901
  8. SIMVASTATIN [Concomitant]
  9. WARAN [Concomitant]
     Route: 048
  10. IMPUGAN [Concomitant]
     Route: 048
  11. SYMBICORT FORTE [Concomitant]
     Route: 055
  12. ACETAMINOPHEN [Concomitant]
     Route: 048

REACTIONS (1)
  - BRADYCARDIA [None]
